FAERS Safety Report 4445382-X (Version None)
Quarter: 2004Q3

REPORT INFORMATION
  Report Type: 
  Country: None (occurrence: None)
  Receive Date: 20040909
  Receipt Date: 20040831
  Transmission Date: 20050211
  Serious: Yes (Hospitalization, Other)
  Sender: FDA-Public Use
  Company Number: US-MERCK-0408USA02318

PATIENT
  Age: 41 Year
  Sex: Male

DRUGS (8)
  1. ASPIRIN [Concomitant]
     Route: 065
  2. TRACLEER [Suspect]
     Indication: PULMONARY HYPERTENSION
     Route: 048
     Dates: start: 20030501, end: 20040716
  3. TRACLEER [Suspect]
     Route: 048
     Dates: start: 20030401, end: 20030501
  4. WELLBUTRIN [Suspect]
     Route: 065
     Dates: end: 20040714
  5. PRINIVIL [Concomitant]
     Route: 065
  6. MEVACOR [Suspect]
     Route: 048
     Dates: end: 20040714
  7. MAGNESIA [MILK OF] [Concomitant]
     Route: 065
  8. COUMADIN [Concomitant]
     Route: 065

REACTIONS (9)
  - ABDOMINAL PAIN UPPER [None]
  - ALANINE AMINOTRANSFERASE INCREASED [None]
  - ANOREXIA [None]
  - ASPARTATE AMINOTRANSFERASE INCREASED [None]
  - BLOOD ALKALINE PHOSPHATASE INCREASED [None]
  - BLOOD BILIRUBIN INCREASED [None]
  - CONSTIPATION [None]
  - HEPATITIS [None]
  - INTERNATIONAL NORMALISED RATIO INCREASED [None]
